FAERS Safety Report 9493772 (Version 6)
Quarter: 2013Q4

REPORT INFORMATION
  Report Type: Report from Study
  Country: GB (occurrence: GB)
  Receive Date: 20130902
  Receipt Date: 20131211
  Transmission Date: 20140711
  Serious: Yes (Hospitalization)
  Sender: FDA-Public Use
  Company Number: GB-BRISTOL-MYERS SQUIBB COMPANY-19204494

PATIENT
  Age: 62 Year
  Sex: Male
  Weight: 88 kg

DRUGS (6)
  1. IPILIMUMAB [Suspect]
     Indication: SMALL CELL LUNG CANCER
     Dosage: DATE OF RECENT ADMINSTRATION 02AUG13?INTER ON 2AUG13
     Dates: start: 20130621
  2. CARBOPLATIN [Suspect]
     Indication: SMALL CELL LUNG CANCER
     Dosage: DATE OF RECENT ADMINSTRATION 02AUG13?INTER ON 2AUG13
     Dates: start: 20130430
  3. ETOPOSIDE [Suspect]
     Indication: SMALL CELL LUNG CANCER
     Dosage: DATE OF RECENT ADMINSTRATION 02AUG13?INTER ON 2AUG13
     Dates: start: 20130430
  4. FILGRASTIM [Concomitant]
     Route: 058
     Dates: start: 20130806, end: 20130813
  5. LOPERAMIDE [Concomitant]
     Route: 058
     Dates: start: 20130802, end: 20130810
  6. CETIRIZINE [Concomitant]
     Route: 048
     Dates: start: 20130808, end: 20130812

REACTIONS (3)
  - Neutropenic sepsis [Recovered/Resolved]
  - Lower respiratory tract infection [Recovered/Resolved]
  - Neutropenia [Recovered/Resolved]
